FAERS Safety Report 15122981 (Version 9)
Quarter: 2020Q3

REPORT INFORMATION
  Report Type: Report from Study
  Country: US (occurrence: US)
  Receive Date: 20180709
  Receipt Date: 20200702
  Transmission Date: 20201102
  Serious: Yes (Hospitalization)
  Sender: FDA-Public Use
  Company Number: US-ACTELION-A-NJ2018-175035

PATIENT
  Sex: Female
  Weight: 116.1 kg

DRUGS (7)
  1. WARFARIN [Concomitant]
     Active Substance: WARFARIN
  2. ELIQUIS [Concomitant]
     Active Substance: APIXABAN
  3. UPTRAVI [Suspect]
     Active Substance: SELEXIPAG
     Indication: PULMONARY ARTERIAL HYPERTENSION
     Dosage: 1600 MCG, BID
     Route: 048
  4. UPTRAVI [Suspect]
     Active Substance: SELEXIPAG
     Dosage: UNK
     Route: 048
  5. TRACLEER [Concomitant]
     Active Substance: BOSENTAN
     Indication: PULMONARY ARTERIAL HYPERTENSION
  6. NIFEDIPINE. [Concomitant]
     Active Substance: NIFEDIPINE
  7. ZONEGRAN [Concomitant]
     Active Substance: ZONISAMIDE

REACTIONS (18)
  - Fall [Unknown]
  - Asthenia [Unknown]
  - Bronchitis [Unknown]
  - Knee operation [Unknown]
  - Joint injury [Unknown]
  - Blood iron decreased [Unknown]
  - Sleep apnoea syndrome [Unknown]
  - Knee arthroplasty [Unknown]
  - Cough [Unknown]
  - Chronic obstructive pulmonary disease [Unknown]
  - Intentional product use issue [Unknown]
  - Malaise [Unknown]
  - Headache [Not Recovered/Not Resolved]
  - Fatigue [Unknown]
  - Migraine [Not Recovered/Not Resolved]
  - Dyspnoea [Unknown]
  - Decreased appetite [Unknown]
  - Inappropriate schedule of product administration [Unknown]
